FAERS Safety Report 5242228-7 (Version None)
Quarter: 2007Q1

REPORT INFORMATION
  Report Type: 
  Country: None (occurrence: None)
  Receive Date: 20070215
  Receipt Date: 20070215
  Transmission Date: 20070707
  Serious: Yes (Other)
  Sender: FDA-Public Use
  Company Number: None

PATIENT
  Age: 12 Year
  Sex: Female

DRUGS (6)
  1. ISOTRETINOIN [Suspect]
     Indication: ACNE
     Dosage: SEE IMAGE
     Dates: start: 20060924, end: 20061018
  2. ISOTRETINOIN [Suspect]
     Indication: ACNE
     Dosage: SEE IMAGE
     Dates: start: 20061019, end: 20070122
  3. CINGULAIR [Concomitant]
  4. ZYRTEC [Concomitant]
  5. NASONEX [Concomitant]
  6. ASTELIN [Concomitant]

REACTIONS (3)
  - ASTHMA [None]
  - CONDITION AGGRAVATED [None]
  - LUNG DISORDER [None]
